FAERS Safety Report 15878639 (Version 7)
Quarter: 2019Q4

REPORT INFORMATION
  Report Type: Spontaneous
  Country: US (occurrence: US)
  Receive Date: 20190128
  Receipt Date: 20191106
  Transmission Date: 20200122
  Serious: Yes (Other)
  Sender: FDA-Public Use
  Company Number: US-PFIZER INC-2019038011

PATIENT
  Age: 74 Year
  Sex: Female

DRUGS (1)
  1. IBRANCE [Suspect]
     Active Substance: PALBOCICLIB
     Indication: BREAST CANCER FEMALE
     Dosage: 125 MG, UNK

REACTIONS (11)
  - Fatigue [Unknown]
  - Poor quality sleep [Unknown]
  - Malaise [Unknown]
  - Neuropathy peripheral [Unknown]
  - Weight decreased [Unknown]
  - Insomnia [Unknown]
  - Blood pressure increased [Unknown]
  - Panic reaction [Unknown]
  - Gastric disorder [Unknown]
  - Memory impairment [Unknown]
  - Asthenia [Unknown]
